FAERS Safety Report 6607430-8 (Version None)
Quarter: 2010Q1

REPORT INFORMATION
  Report Type: 
  Country: None (occurrence: None)
  Receive Date: 20100301
  Receipt Date: 20100219
  Transmission Date: 20100710
  Serious: Yes (Hospitalization)
  Sender: FDA-Public Use
  Company Number: FR-EISAI INC.-E3810-03485-SPO-FR

PATIENT
  Sex: Male

DRUGS (10)
  1. PARIET (RABEPRAZOLE) [Suspect]
     Route: 048
  2. FLUINDIONE [Suspect]
     Route: 048
     Dates: start: 20050101, end: 20080508
  3. CORDARONE [Suspect]
     Route: 048
  4. FLUOXETINE [Suspect]
     Indication: DEPRESSION
     Route: 048
  5. TAHOR [Suspect]
     Route: 048
  6. AMLOR [Suspect]
     Indication: HYPERTENSION
     Route: 048
  7. AERIUS [Concomitant]
     Indication: HYPERSENSITIVITY
     Route: 048
  8. IMOVANE [Concomitant]
     Route: 048
  9. EPINITRIL [Concomitant]
     Route: 062
  10. TARDYFERON [Concomitant]
     Route: 048

REACTIONS (2)
  - HAEMATOMA [None]
  - INTERNATIONAL NORMALISED RATIO INCREASED [None]
